FAERS Safety Report 5635882-9 (Version None)
Quarter: 2008Q1

REPORT INFORMATION
  Report Type: 
  Country: None (occurrence: None)
  Receive Date: 20080221
  Receipt Date: 20080208
  Transmission Date: 20080703
  Serious: Yes (Death, Hospitalization)
  Sender: FDA-Public Use
  Company Number: 2008US000520

PATIENT
  Age: 47 Year
  Sex: 0

DRUGS (2)
  1. AMBISOME [Suspect]
     Indication: MUCORMYCOSIS
     Dosage: 5 MG/KG, UID/QD
     Dates: start: 20070123, end: 20070323
  2. POSACONAZOLE [Concomitant]

REACTIONS (4)
  - CONDITION AGGRAVATED [None]
  - FUNGAL INFECTION [None]
  - HYPOKALAEMIA [None]
  - LUNG NEOPLASM MALIGNANT [None]
